FAERS Safety Report 25407634 (Version 3)
Quarter: 2025Q4

REPORT INFORMATION
  Report Type: Spontaneous
  Country: US (occurrence: US)
  Receive Date: 20250606
  Receipt Date: 20251013
  Transmission Date: 20260117
  Serious: No
  Sender: BIOVITRUM
  Company Number: US-BIOVITRUM-2025-US-007706

PATIENT
  Age: 79 Year
  Sex: Female

DRUGS (3)
  1. DOPTELET [Suspect]
     Active Substance: AVATROMBOPAG MALEATE
     Indication: Product used for unknown indication
     Dosage: AS ORDERED
     Route: 048
  2. DOPTELET [Suspect]
     Active Substance: AVATROMBOPAG MALEATE
     Dosage: DOCTOR INCREASED IT TO ONE MORE DAY TILL THE NEXT DAY AND ORDERED IT FOR TWO MONTHS.
     Route: 048
  3. DOPTELET [Suspect]
     Active Substance: AVATROMBOPAG MALEATE
     Dosage: 1X1 DAILY (ONCE DAILY)
     Route: 048

REACTIONS (2)
  - Product use issue [Unknown]
  - Platelet count decreased [Unknown]
